FAERS Safety Report 7451647-X (Version None)
Quarter: 2011Q2

REPORT INFORMATION
  Report Type: 
  Country: None (occurrence: None)
  Receive Date: 20110502
  Receipt Date: 20100708
  Transmission Date: 20111010
  Serious: No
  Sender: FDA-Public Use
  Company Number: US-ASTRAZENECA-2010SE31869

PATIENT
  Sex: Female
  Weight: 56.7 kg

DRUGS (3)
  1. NEXIUM [Suspect]
     Route: 048
     Dates: start: 20010101, end: 20090101
  2. PRILOSEC [Suspect]
     Route: 048
  3. EXTRA STRENGTH TYLENOL [Concomitant]

REACTIONS (4)
  - VOMITING [None]
  - DRUG DOSE OMISSION [None]
  - DRUG INEFFECTIVE [None]
  - FOOD INTOLERANCE [None]
